FAERS Safety Report 14646914 (Version 2)
Quarter: 2018Q3

REPORT INFORMATION
  Report Type: Spontaneous
  Country: FR (occurrence: FR)
  Receive Date: 20180316
  Receipt Date: 20180731
  Transmission Date: 20181010
  Serious: Yes (Hospitalization, Other)
  Sender: FDA-Public Use
  Company Number: FR-MERCK KGAA-2043905

PATIENT
  Age: 35 Year
  Sex: Female

DRUGS (2)
  1. NOVOTHYROX [Suspect]
     Active Substance: LEVOTHYROXINE SODIUM
     Dates: start: 201706
  2. NOVOTHYROX [Suspect]
     Active Substance: LEVOTHYROXINE SODIUM
     Indication: HYPOTHYROIDISM

REACTIONS (13)
  - Headache [None]
  - Fatigue [None]
  - Back pain [Recovering/Resolving]
  - Sacroiliitis [None]
  - Dysaesthesia [None]
  - Weight increased [None]
  - Arthralgia [None]
  - Tremor [None]
  - Hyperthyroidism [Recovered/Resolved]
  - Paraesthesia [None]
  - Spinal pain [None]
  - Musculoskeletal stiffness [None]
  - Neck pain [None]

NARRATIVE: CASE EVENT DATE: 201706
